FAERS Safety Report 8115180-4 (Version None)
Quarter: 2012Q1

REPORT INFORMATION
  Report Type: 
  Country: None (occurrence: None)
  Receive Date: 20120201
  Receipt Date: 20120116
  Transmission Date: 20120608
  Serious: Yes (Life-Threatening, Hospitalization)
  Sender: FDA-Public Use
  Company Number: FK201200170

PATIENT
  Age: 40 Year
  Sex: Male

DRUGS (5)
  1. FENTANYL [Suspect]
     Indication: PRODUCT USED FOR UNKNOWN INDICATION
  2. SEVOFLURANE [Suspect]
     Indication: PRODUCT USED FOR UNKNOWN INDICATION
  3. NITROUS OXIDE (NITROUS OXIDE) (NITROUS OXIDE) [Suspect]
     Indication: PRODUCT USED FOR UNKNOWN INDICATION
  4. MIDAZOLAM [Suspect]
     Indication: PRODUCT USED FOR UNKNOWN INDICATION
     Dosage: INTRAVENOUS (NOT OTHERWISE SPECIFIED)
     Route: 042
  5. PROPOFOL [Suspect]
     Indication: ANAESTHESIA
     Dosage: INTRAVENOUS (NOT OTHERWISE SPECIFIED)
     Route: 042

REACTIONS (7)
  - BLOOD PRESSURE IMMEASURABLE [None]
  - RIGHT VENTRICULAR DYSFUNCTION [None]
  - EMBOLISM VENOUS [None]
  - OXYGEN SATURATION DECREASED [None]
  - AIR EMBOLISM [None]
  - TACHYCARDIA [None]
  - DILATATION VENTRICULAR [None]
